FAERS Safety Report 8974625 (Version 3)
Quarter: 2014Q1

REPORT INFORMATION
  Report Type: Spontaneous
  Country: US (occurrence: US)
  Receive Date: 20121220
  Receipt Date: 20140328
  Transmission Date: 20141002
  Serious: No
  Sender: FDA-Public Use
  Company Number: US-009507513-1212USA007571

PATIENT
  Sex: Male

DRUGS (1)
  1. PROSCAR [Suspect]
     Indication: ALOPECIA
     Dosage: 5 MG, UNK
     Route: 048
     Dates: start: 20020730, end: 20060527

REACTIONS (9)
  - Cognitive disorder [Not Recovered/Not Resolved]
  - Hypertension [Unknown]
  - Gastrooesophageal reflux disease [Unknown]
  - Drug administration error [Unknown]
  - Prostatomegaly [Unknown]
  - Adverse event [Unknown]
  - Sexual dysfunction [Not Recovered/Not Resolved]
  - Erectile dysfunction [Unknown]
  - Libido decreased [Unknown]
